FAERS Safety Report 12124675 (Version 3)
Quarter: 2016Q4

REPORT INFORMATION
  Report Type: Report from Study
  Country: US (occurrence: US)
  Receive Date: 20160229
  Receipt Date: 20161110
  Transmission Date: 20170206
  Serious: Yes (Other)
  Sender: FDA-Public Use
  Company Number: PHEH2016US004882

PATIENT
  Age: 29 Year
  Sex: Female
  Weight: 105.67 kg

DRUGS (17)
  1. ZOLOFT [Concomitant]
     Active Substance: SERTRALINE HYDROCHLORIDE
     Indication: SLEEP DISORDER
     Dosage: 1.5 MG, QD
     Route: 048
     Dates: start: 20151110, end: 20160412
  2. SOLU-MEDROL [Concomitant]
     Active Substance: METHYLPREDNISOLONE SODIUM SUCCINATE
     Indication: MULTIPLE SCLEROSIS
     Dosage: 1000 MG, QD
     Route: 042
     Dates: start: 20151005
  3. ELAVIL [Concomitant]
     Active Substance: AMITRIPTYLINE HYDROCHLORIDE
     Indication: PRODUCT USED FOR UNKNOWN INDICATION
     Dosage: 25 MG, TAKE 3-4 TABLETS EVERY NIGHT
     Route: 048
     Dates: start: 20160229, end: 20160918
  4. LIORESAL [Concomitant]
     Active Substance: BACLOFEN
     Indication: MUSCLE TIGHTNESS
  5. MARIJUANA [Concomitant]
     Active Substance: CANNABIS SATIVA SUBSP. INDICA TOP
     Indication: SLEEP DISORDER
     Dosage: UNK
     Route: 065
  6. LAMICTAL [Concomitant]
     Active Substance: LAMOTRIGINE
     Indication: HEADACHE
     Dosage: 2 DF, QD
     Route: 048
     Dates: start: 20151207, end: 20160412
  7. NORCO [Concomitant]
     Active Substance: ACETAMINOPHEN\HYDROCODONE BITARTRATE
     Indication: PAIN
     Dosage: 1 DF (5/325 MG), Q4H
     Route: 048
     Dates: start: 20151008, end: 20161027
  8. LIORESAL [Concomitant]
     Active Substance: BACLOFEN
     Indication: PAIN
     Dosage: 10 MG, TAKE 1.5 DF 3 TIMES DAILY
     Route: 048
     Dates: start: 20151110, end: 20161027
  9. LIORESAL [Concomitant]
     Active Substance: BACLOFEN
     Indication: MUSCLE SPASMS
  10. GILENYA [Suspect]
     Active Substance: FINGOLIMOD HYDROCHLORIDE
     Indication: MULTIPLE SCLEROSIS
     Dosage: 0.5 MG, QD
     Route: 048
     Dates: start: 20160121, end: 201602
  11. REBIF [Suspect]
     Active Substance: INTERFERON BETA-1A
     Indication: MULTIPLE SCLEROSIS
     Route: 065
  12. VITAMIN D [Concomitant]
     Active Substance: CHOLECALCIFEROL
     Indication: PRODUCT USED FOR UNKNOWN INDICATION
     Dosage: UNK
     Route: 048
     Dates: start: 20151110, end: 2015
  13. VISTARIL [Concomitant]
     Active Substance: HYDROXYZINE PAMOATE
     Indication: HEADACHE
     Dosage: 1 DF, TID
     Route: 048
     Dates: start: 20151201
  14. VITAMIN D [Concomitant]
     Active Substance: CHOLECALCIFEROL
     Dosage: 10000 IU, UNK
     Route: 048
  15. KLONOPIN [Concomitant]
     Active Substance: CLONAZEPAM
     Indication: PAIN
     Dosage: 0.5 DF, BID (TAKE 0.5 TAB TWO ADDITIONAL TIMES PER DAY AS NEEDED)
     Route: 048
     Dates: start: 20160120, end: 20160722
  16. VITAMIN D3 [Concomitant]
     Active Substance: CHOLECALCIFEROL
     Indication: VITAMIN D DEFICIENCY
     Dosage: 10000 U, QD
     Route: 048
     Dates: start: 20151110
  17. AMBIEN [Concomitant]
     Active Substance: ZOLPIDEM TARTRATE
     Indication: SLEEP DISORDER
     Dosage: 1 DF, PRN (NIGHTLY)
     Route: 048
     Dates: start: 20151110, end: 20160529

REACTIONS (22)
  - Fall [Unknown]
  - Memory impairment [Unknown]
  - Stress [Unknown]
  - Balance disorder [Unknown]
  - Mental impairment [Unknown]
  - Immunoglobulins increased [Unknown]
  - Drug intolerance [Unknown]
  - Haematochezia [Recovered/Resolved]
  - Injection site erythema [Unknown]
  - Faeces discoloured [Unknown]
  - Gastrointestinal haemorrhage [Recovered/Resolved]
  - Dizziness [Unknown]
  - Multiple sclerosis relapse [Unknown]
  - Eye pain [Unknown]
  - Somnolence [Unknown]
  - Diarrhoea haemorrhagic [Recovered/Resolved]
  - Abdominal pain lower [Recovered/Resolved]
  - Fatigue [Unknown]
  - Infection [Unknown]
  - Viral infection [Unknown]
  - White blood cell count increased [Unknown]
  - Loss of consciousness [Unknown]

NARRATIVE: CASE EVENT DATE: 201609
